FAERS Safety Report 10277120 (Version 12)
Quarter: 2016Q1

REPORT INFORMATION
  Report Type: Report from Study
  Country: US (occurrence: US)
  Receive Date: 20140703
  Receipt Date: 20160104
  Transmission Date: 20160525
  Serious: Yes (Life-Threatening, Hospitalization, Other)
  Sender: FDA-Public Use
  Company Number: US-ALEXION PHARMACEUTICALS INC.-A201402498

PATIENT
  Age: 46 Year
  Sex: Female

DRUGS (6)
  1. CYCLOPHOSPHAMIDE. [Suspect]
     Active Substance: CYCLOPHOSPHAMIDE
     Indication: INVASIVE LOBULAR BREAST CARCINOMA
     Dosage: 1130 MG, EVERY THREE WEEKS
     Route: 065
     Dates: start: 20140822, end: 20141204
  2. SOLIRIS [Suspect]
     Active Substance: ECULIZUMAB
     Indication: PAROXYSMAL NOCTURNAL HAEMOGLOBINURIA
     Dosage: 900 MG, Q2W
     Route: 042
     Dates: start: 20080910
  3. PAXIL [Concomitant]
     Active Substance: PAROXETINE HYDROCHLORIDE
     Indication: PRODUCT USED FOR UNKNOWN INDICATION
     Route: 065
  4. ARIMIDEX [Suspect]
     Active Substance: ANASTROZOLE
     Indication: BREAST CANCER
     Route: 065
  5. NEULASTA [Suspect]
     Active Substance: PEGFILGRASTIM
     Indication: INVASIVE LOBULAR BREAST CARCINOMA
     Dosage: UNK
     Route: 065
  6. DOCETAXEL. [Suspect]
     Active Substance: DOCETAXEL
     Indication: INVASIVE LOBULAR BREAST CARCINOMA
     Dosage: 140 MG, EVERY THREE WEEKS
     Route: 065
     Dates: start: 20140822, end: 20141204

REACTIONS (25)
  - Staphylococcal infection [Recovered/Resolved]
  - Neutrophil count decreased [Unknown]
  - Bone pain [Recovered/Resolved]
  - Wound dehiscence [Unknown]
  - White blood cell disorder [Recovering/Resolving]
  - Laboratory test abnormal [Unknown]
  - Sinusitis [Recovered/Resolved]
  - Dyspepsia [Unknown]
  - Platelet count decreased [Recovering/Resolving]
  - Neutropenia [Not Recovered/Not Resolved]
  - Anaemia [Unknown]
  - Lymphocyte count decreased [Unknown]
  - Arthralgia [Recovered/Resolved]
  - Metastases to lymph nodes [Unknown]
  - Pancytopenia [Not Recovered/Not Resolved]
  - Arthritis [Not Recovered/Not Resolved]
  - Stomatitis [Unknown]
  - Anaemia [Not Recovered/Not Resolved]
  - Leukopenia [Not Recovered/Not Resolved]
  - Alopecia [Recovering/Resolving]
  - Thrombocytopenia [Not Recovered/Not Resolved]
  - Invasive lobular breast carcinoma [Not Recovered/Not Resolved]
  - Post procedural infection [Recovering/Resolving]
  - Wound infection staphylococcal [Recovered/Resolved]
  - Oesophageal spasm [Unknown]

NARRATIVE: CASE EVENT DATE: 20140618
